FAERS Safety Report 15271044 (Version 1)
Quarter: 2018Q3

REPORT INFORMATION
  Report Type: Spontaneous
  Country: US (occurrence: US)
  Receive Date: 20180726
  Receipt Date: 20180726
  Transmission Date: 20181010
  Serious: Yes (Other)
  Sender: FDA-Public Use
  Company Number: None

PATIENT
  Age: 23 Year
  Sex: Female
  Weight: 57.61 kg

DRUGS (1)
  1. LAMOTRIGINE 200MG [Suspect]
     Active Substance: LAMOTRIGINE
     Route: 048

REACTIONS (2)
  - Drug ineffective [None]
  - Therapeutic response changed [None]

NARRATIVE: CASE EVENT DATE: 20120329
